FAERS Safety Report 17008527 (Version 1)
Quarter: 2019Q4

REPORT INFORMATION
  Report Type: Spontaneous
  Country: US (occurrence: US)
  Receive Date: 20191108
  Receipt Date: 20191108
  Transmission Date: 20200122
  Serious: No
  Sender: FDA-Public Use
  Company Number: US-ACCORD-090997

PATIENT
  Sex: Male
  Weight: 67.13 kg

DRUGS (1)
  1. MONTELUKAST [Suspect]
     Active Substance: MONTELUKAST SODIUM
     Indication: PRODUCTIVE COUGH
     Dosage: DOSE: 10 MG ONCE AT BEDTIME
     Dates: start: 20181012

REACTIONS (2)
  - Hiccups [Recovered/Resolved]
  - Condition aggravated [Not Recovered/Not Resolved]
